FAERS Safety Report 11083467 (Version 1)
Quarter: 2015Q2

REPORT INFORMATION
  Report Type: Report from Study
  Country: US (occurrence: US)
  Receive Date: 20150501
  Receipt Date: 20150501
  Transmission Date: 20150821
  Serious: No
  Sender: FDA-Public Use
  Company Number: US-ABBVIE-14P-163-1269491-00

PATIENT
  Age: 54 Year
  Sex: Male

DRUGS (5)
  1. ANDROGEL [Suspect]
     Active Substance: TESTOSTERONE
  2. ANDROGEL [Suspect]
     Active Substance: TESTOSTERONE
     Indication: PRODUCT USED FOR UNKNOWN INDICATION
     Dosage: 1 PUMP
     Route: 061
     Dates: start: 20140606
  3. ANDROGEL [Suspect]
     Active Substance: TESTOSTERONE
  4. ANDROGEL [Suspect]
     Active Substance: TESTOSTERONE
  5. ANDROGEL [Suspect]
     Active Substance: TESTOSTERONE

REACTIONS (3)
  - Eye irritation [Recovered/Resolved]
  - Pruritus [Recovered/Resolved]
  - Flushing [Recovered/Resolved]

NARRATIVE: CASE EVENT DATE: 201406
